FAERS Safety Report 21498442 (Version 1)
Quarter: 2022Q4

REPORT INFORMATION
  Report Type: Spontaneous
  Country: US (occurrence: None)
  Receive Date: 20221021
  Receipt Date: 20221021
  Transmission Date: 20230112
  Serious: No
  Sender: FDA-Public Use
  Company Number: None

PATIENT
  Sex: Female

DRUGS (1)
  1. OPSUMIT [Suspect]
     Active Substance: MACITENTAN
     Indication: Pulmonary arterial hypertension
     Dosage: ?10MG DAILY BY MOUTH
     Route: 048
     Dates: start: 20221010

REACTIONS (5)
  - Treatment noncompliance [None]
  - Headache [None]
  - Dyspnoea [None]
  - Arthralgia [None]
  - Arthralgia [None]
